FAERS Safety Report 8604800-3 (Version None)
Quarter: 2012Q3

REPORT INFORMATION
  Report Type: 
  Country: None (occurrence: None)
  Receive Date: 20120820
  Receipt Date: 20120808
  Transmission Date: 20120928
  Serious: Yes (Other)
  Sender: FDA-Public Use
  Company Number: US-ELI_LILLY_AND_COMPANY-US201101003606

PATIENT
  Sex: Female
  Weight: 99.773 kg

DRUGS (14)
  1. CALCIUM +VIT D [Concomitant]
     Dosage: UNK
  2. FORTEO [Suspect]
     Indication: OSTEOPOROSIS
     Dosage: 20 UG, QD
     Dates: start: 20101014
  3. EZETIMIBE [Concomitant]
  4. FORTEO [Suspect]
     Dosage: 20 UG, QD
     Dates: start: 20101014
  5. CETIRIZINE [Concomitant]
     Dosage: 10 MG, QD
  6. ATENOLOL [Concomitant]
     Dosage: UNK
  7. ASPIRIN [Concomitant]
     Dosage: UNK
  8. FORTEO [Suspect]
     Dosage: 20 UG, QD
     Dates: start: 20101014
  9. FORTEO [Suspect]
     Dosage: 20 UG, QD
     Dates: start: 20101014
  10. MULTI-VITAMIN [Concomitant]
     Dosage: UNK
  11. VITAMIN B-12 [Concomitant]
     Dosage: UNK
  12. PREDNISONE TAB [Concomitant]
     Indication: PULMONARY FIBROSIS
     Dosage: 5 MG, QD
  13. NEXIUM [Concomitant]
     Indication: GASTROOESOPHAGEAL REFLUX DISEASE
  14. IPRATROPIUM BROMIDE [Concomitant]
     Dosage: UNK

REACTIONS (5)
  - TREMOR [None]
  - MYALGIA [None]
  - ARTERIAL DISORDER [None]
  - DYSPNOEA [None]
  - COUGH [None]
